FAERS Safety Report 9174808 (Version 1)
Quarter: 2013Q1

REPORT INFORMATION
  Report Type: Report from Study
  Country: JP (occurrence: JP)
  Receive Date: 20130320
  Receipt Date: 20130320
  Transmission Date: 20140127
  Serious: Yes (Other)
  Sender: FDA-Public Use
  Company Number: JP-009507513-1303JPN008409

PATIENT
  Age: 59 Year
  Sex: Female
  Weight: 58 kg

DRUGS (17)
  1. PEGINTRON [Suspect]
     Indication: CHRONIC HEPATITIS C
     Dosage: 1.37 MCG WEEK
     Route: 058
     Dates: start: 20120904, end: 20120910
  2. PEGINTRON [Suspect]
     Dosage: 0. 71 UG/ KG/ WEEK
     Route: 058
     Dates: start: 20120911, end: 20120924
  3. PEGINTRON [Suspect]
     Dosage: 1.07 UG/ KG/ WEEK
     Route: 058
     Dates: start: 20120925, end: 20121126
  4. PEGINTRON [Suspect]
     Dosage: 0.71 UG/ KG/ WEEK
     Route: 058
     Dates: start: 20121127, end: 20121210
  5. PEGINTRON [Suspect]
     Dosage: 0.36 UG/ KG/ WEEK
     Route: 058
     Dates: start: 20121211, end: 20121224
  6. REBETOL [Suspect]
     Indication: CHRONIC HEPATITIS C
     Dosage: 400 MG, QD
     Route: 048
     Dates: end: 20120925
  7. REBETOL [Suspect]
     Dosage: 200 UNK, UNK
     Route: 048
     Dates: start: 20120926, end: 20121217
  8. TELAVIC [Suspect]
     Indication: CHRONIC HEPATITIS C
     Dosage: 1500 MG, COMULATIVE DOSE: 7500 MG
     Route: 048
     Dates: start: 20120904, end: 20121001
  9. TELAVIC [Suspect]
     Dosage: 750 MG, QD
     Route: 048
     Dates: start: 20121002, end: 20121126
  10. ZYLORIC [Concomitant]
     Indication: HYPERURICAEMIA
     Dosage: 200 MG, QD
     Route: 048
     Dates: start: 20120918, end: 20121217
  11. LENDORMIN [Concomitant]
     Indication: INSOMNIA
     Dosage: UNK, PRN
     Route: 048
     Dates: start: 20120925, end: 20121217
  12. BIO-THREE [Concomitant]
     Indication: DIARRHOEA
     Dosage: 3 DF, QD
     Route: 048
     Dates: start: 20121002, end: 20121224
  13. ALLEGRA [Concomitant]
     Indication: CHRONIC HEPATITIS C
     Dosage: 120 MG, QD
     Route: 048
     Dates: start: 20120910, end: 20130107
  14. RINDERON (BETAMETHASONE SODIUM PHOSPHATE) [Concomitant]
     Indication: CHRONIC HEPATITIS C
     Dosage: DAILY DOSE UNKNOWN
     Route: 051
     Dates: start: 20121002, end: 20121022
  15. RINDERON (BETAMETHASONE SODIUM PHOSPHATE) [Concomitant]
     Indication: RASH
  16. RINDERON (BETAMETHASONE SODIUM PHOSPHATE) [Concomitant]
     Indication: PRURITUS
  17. PARIET [Concomitant]
     Dosage: 10 MG, QD
     Route: 048
     Dates: end: 20130107

REACTIONS (2)
  - Retinopathy [Recovered/Resolved]
  - Anaemia [Recovered/Resolved]
